FAERS Safety Report 18196433 (Version 3)
Quarter: 2020Q4

REPORT INFORMATION
  Report Type: Spontaneous
  Country: DE (occurrence: DE)
  Receive Date: 20200826
  Receipt Date: 20201231
  Transmission Date: 20210113
  Serious: Yes (Other)
  Sender: FDA-Public Use
  Company Number: DE-EMD SERONO-9181658

PATIENT
  Age: 31 Year
  Sex: Female
  Weight: 57 kg

DRUGS (2)
  1. MAVENCLAD [Suspect]
     Active Substance: CLADRIBINE
     Indication: MULTIPLE SCLEROSIS
     Dosage: FIRST MONTH THERAPY: FIVE MAVENCLAD TABLETS
     Route: 048
     Dates: start: 20190520
  2. MAVENCLAD [Suspect]
     Active Substance: CLADRIBINE
     Dosage: SECOND MONTH THERAPY: FIVE MAVENCLAD TABLETS
     Route: 048
     Dates: end: 20190628

REACTIONS (7)
  - Blood immunoglobulin M increased [Unknown]
  - Cervical dysplasia [Unknown]
  - Anaemia [Not Recovered/Not Resolved]
  - Leukopenia [Not Recovered/Not Resolved]
  - Eosinophil percentage increased [Recovering/Resolving]
  - Lymphocyte count decreased [Recovered/Resolved]
  - Neutrophil count decreased [Recovering/Resolving]

NARRATIVE: CASE EVENT DATE: 20200210
